FAERS Safety Report 14818589 (Version 1)
Quarter: 2018Q2

REPORT INFORMATION
  Report Type: Spontaneous
  Country: FR (occurrence: FR)
  Receive Date: 20180427
  Receipt Date: 20180427
  Transmission Date: 20180711
  Serious: Yes (Other)
  Sender: FDA-Public Use
  Company Number: FR-MERCK KGAA-2046700

PATIENT
  Age: 39 Year
  Sex: Female

DRUGS (1)
  1. NOVOTHYROX [Suspect]
     Active Substance: LEVOTHYROXINE SODIUM
     Indication: HYPOTHYROIDISM
     Dates: start: 201704

REACTIONS (26)
  - Pain [Recovering/Resolving]
  - Musculoskeletal stiffness [Recovering/Resolving]
  - Loss of personal independence in daily activities [Recovering/Resolving]
  - Decreased activity [Recovering/Resolving]
  - Middle insomnia [Recovering/Resolving]
  - Myalgia [Recovering/Resolving]
  - Fatigue [Recovering/Resolving]
  - Anxiety [Recovering/Resolving]
  - Fear [Recovering/Resolving]
  - Impaired driving ability [Recovering/Resolving]
  - Social avoidant behaviour [Recovering/Resolving]
  - Muscle twitching [Recovering/Resolving]
  - General physical health deterioration [Recovering/Resolving]
  - Musculoskeletal discomfort [Recovering/Resolving]
  - Personal relationship issue [Recovering/Resolving]
  - Chest discomfort [Recovering/Resolving]
  - Vertigo [Recovering/Resolving]
  - Tearfulness [Recovering/Resolving]
  - Sleep disorder [Recovering/Resolving]
  - Initial insomnia [Recovering/Resolving]
  - Muscle tightness [Recovering/Resolving]
  - Paraesthesia [Recovering/Resolving]
  - Emotional distress [Recovering/Resolving]
  - Chest pain [Recovering/Resolving]
  - Illness anxiety disorder [Recovering/Resolving]
  - Gait inability [Recovering/Resolving]

NARRATIVE: CASE EVENT DATE: 201704
